FAERS Safety Report 15900750 (Version 1)
Quarter: 2019Q1

REPORT INFORMATION
  Report Type: Report from Study
  Country: None (occurrence: IT)
  Receive Date: 20190201
  Receipt Date: 20190201
  Transmission Date: 20190417
  Serious: Yes (Death)
  Sender: FDA-Public Use
  Company Number: IT-ABBVIE-19S-083-2647265-00

PATIENT
  Age: 74 Year
  Sex: Male

DRUGS (1)
  1. DUODOPA [Suspect]
     Active Substance: CARBIDOPA\LEVODOPA
     Indication: PARKINSON^S DISEASE
     Dosage: MD: 16,5+3 CR: 3,2 ED: 4,1
     Route: 050
     Dates: start: 20120716, end: 20190116

REACTIONS (1)
  - Intestinal infarction [Fatal]

NARRATIVE: CASE EVENT DATE: 20190116
